FAERS Safety Report 5951300-5 (Version None)
Quarter: 2008Q4

REPORT INFORMATION
  Report Type: 
  Country: None (occurrence: None)
  Receive Date: 20081022
  Receipt Date: 20080808
  Transmission Date: 20090506
  Serious: No
  Sender: FDA-Public Use
  Company Number: ALL1-2008-02049

PATIENT
  Sex: Female

DRUGS (3)
  1. VYVANSE [Suspect]
     Indication: ATTENTION DEFICIT/HYPERACTIVITY DISORDER
     Dosage: 50 MG, 1X/DAY: QD, ORAL
     Route: 048
     Dates: start: 20080715, end: 20080717
  2. ESTRADIOL W/ESTRIOL (ESTRADIOL, ESTRIOL) [Concomitant]
  3. CELEXA /00582602/(CITALOPRAM HYDROBROMIDE) [Concomitant]

REACTIONS (2)
  - FATIGUE [None]
  - YAWNING [None]
